FAERS Safety Report 8159986-4 (Version None)
Quarter: 2012Q1

REPORT INFORMATION
  Report Type: 
  Country: None (occurrence: None)
  Receive Date: 20120223
  Receipt Date: 20110707
  Transmission Date: 20120608
  Serious: Yes (Other)
  Sender: FDA-Public Use
  Company Number: US-GLAXOSMITHKLINE-A0935337A

PATIENT
  Age: 65 Year
  Sex: Female

DRUGS (7)
  1. THYROID MEDICATION [Concomitant]
  2. COUMADIN [Concomitant]
  3. PRAVASTATIN [Concomitant]
  4. VITAMIN TAB [Concomitant]
  5. METOPROLOL TARTRATE [Concomitant]
  6. FLOVENT [Suspect]
     Indication: CHRONIC OBSTRUCTIVE PULMONARY DISEASE
     Dosage: 2PUFF TWICE PER DAY
     Route: 055
     Dates: start: 20110401
  7. TAPAZOLE [Concomitant]

REACTIONS (5)
  - OROPHARYNGEAL DISCOMFORT [None]
  - OROPHARYNGEAL PAIN [None]
  - BRONCHITIS CHRONIC [None]
  - CATARACT [None]
  - WHEEZING [None]
